FAERS Safety Report 23398357 (Version 1)
Quarter: 2024Q1

REPORT INFORMATION
  Report Type: Spontaneous
  Country: US (occurrence: None)
  Receive Date: 20240112
  Receipt Date: 20240112
  Transmission Date: 20240410
  Serious: Yes (Other)
  Sender: FDA-Public Use
  Company Number: None

PATIENT
  Age: 65 Year
  Sex: Female

DRUGS (1)
  1. TYRVAYA [Suspect]
     Active Substance: VARENICLINE TARTRATE
     Indication: Keratitis
     Dosage: .03 MG/ML TWICE A DAY NASAL?
     Route: 045
     Dates: start: 20231119, end: 20231123

REACTIONS (1)
  - Blood pressure increased [None]

NARRATIVE: CASE EVENT DATE: 20231123
